FAERS Safety Report 4607121-9 (Version None)
Quarter: 2005Q1

REPORT INFORMATION
  Report Type: 
  Country: None (occurrence: None)
  Receive Date: 20050314
  Receipt Date: 20050304
  Transmission Date: 20050727
  Serious: Yes (Death)
  Sender: FDA-Public Use
  Company Number: US-JNJFOC-20050301554

PATIENT
  Age: 66 Year
  Sex: Male

DRUGS (4)
  1. REOPRO [Suspect]
     Route: 042
  2. HEPARIN [Suspect]
     Indication: DRUG USE FOR UNKNOWN INDICATION
  3. PLAVIX [Concomitant]
  4. ASPIRIN [Concomitant]

REACTIONS (6)
  - BUNDLE BRANCH BLOCK LEFT [None]
  - CARDIO-RESPIRATORY ARREST [None]
  - CHEST PAIN [None]
  - HAEMORRHAGE INTRACRANIAL [None]
  - MOUTH HAEMORRHAGE [None]
  - NEUROLOGICAL SYMPTOM [None]
